FAERS Safety Report 9651398 (Version 1)
Quarter: 2013Q4

REPORT INFORMATION
  Report Type: Spontaneous
  Country: US (occurrence: None)
  Receive Date: 20131028
  Receipt Date: 20131028
  Transmission Date: 20140711
  Serious: Yes (Other)
  Sender: FDA-Public Use
  Company Number: None

PATIENT
  Age: 62 Year
  Sex: Female

DRUGS (1)
  1. PRAVASTATIN SODIUM [Suspect]
     Indication: BLOOD CHOLESTEROL INCREASED

REACTIONS (8)
  - Flank pain [None]
  - Mobility decreased [None]
  - Poor quality sleep [None]
  - Pain [None]
  - Exercise tolerance decreased [None]
  - Gait disturbance [None]
  - Limb discomfort [None]
  - Sleep disorder [None]
